FAERS Safety Report 19493314 (Version 1)
Quarter: 2021Q3

REPORT INFORMATION
  Report Type: Spontaneous
  Country: NL (occurrence: NL)
  Receive Date: 20210705
  Receipt Date: 20210705
  Transmission Date: 20211014
  Serious: Yes (Other)
  Sender: FDA-Public Use
  Company Number: NL-STRIDES ARCOLAB LIMITED-2021SP007233

PATIENT
  Age: 69 Year
  Sex: Male

DRUGS (4)
  1. SORAFENIB [Interacting]
     Active Substance: SORAFENIB
     Dosage: DOSE INCREASE TO 200 MG/DAY
     Route: 065
     Dates: start: 2019
  2. TACROLIMUS. [Suspect]
     Active Substance: TACROLIMUS
     Indication: LIVER TRANSPLANT
     Dosage: 10 MILLIGRAM PER DAY
     Route: 065
     Dates: start: 2019
  3. SORAFENIB [Interacting]
     Active Substance: SORAFENIB
     Dosage: DOSE INCREASE TO 400 MG/DAY
     Route: 065
     Dates: start: 2019, end: 201910
  4. SORAFENIB [Interacting]
     Active Substance: SORAFENIB
     Indication: HEPATOCELLULAR CARCINOMA
     Dosage: UNK
     Route: 065
     Dates: start: 2019

REACTIONS (1)
  - Drug interaction [Unknown]

NARRATIVE: CASE EVENT DATE: 2019
